FAERS Safety Report 16742991 (Version 1)
Quarter: 2019Q3

REPORT INFORMATION
  Report Type: Report from Study
  Country: DE (occurrence: DE)
  Receive Date: 20190827
  Receipt Date: 20190827
  Transmission Date: 20191005
  Serious: Yes (Hospitalization)
  Sender: FDA-Public Use
  Company Number: DE-SA-2018SA058420

PATIENT
  Age: 41 Year
  Sex: Female
  Weight: 69 kg

DRUGS (12)
  1. DEKRISTOL [Concomitant]
     Active Substance: CHOLECALCIFEROL
     Indication: VITAMIN D DEFICIENCY
     Dosage: UNK UNK,QW
     Route: 048
     Dates: start: 20131111
  2. ALEMTUZUMAB [Suspect]
     Active Substance: ALEMTUZUMAB
     Indication: MULTIPLE SCLEROSIS
     Dosage: 12 MG,UNK
     Route: 041
     Dates: start: 20160314, end: 20160318
  3. ESCITALOPRAM [Concomitant]
     Active Substance: ESCITALOPRAM OXALATE
     Indication: DEPRESSION
     Dosage: UNK UNK,QD
     Route: 048
     Dates: start: 20141112
  4. FOLSAN [Concomitant]
     Active Substance: FOLIC ACID
     Indication: FOLATE DEFICIENCY
     Dosage: UNK UNK,QD
     Route: 048
     Dates: start: 20140311
  5. ARIXTRA [Concomitant]
     Active Substance: FONDAPARINUX SODIUM
     Indication: THROMBOSIS PROPHYLAXIS
     Dosage: UNK UNK,PRN
     Route: 048
     Dates: start: 20150314
  6. PREDNI [Suspect]
     Active Substance: PREDNISONE ACETATE
     Dosage: 100 MG TAPERED OFF, QD
     Route: 048
     Dates: start: 20190423
  7. VITAMIN B COMPLEX [Concomitant]
     Active Substance: CYANOCOBALAMIN\DEXPANTHENOL\NIACINAMIDE\PYRIDOXINE HYDROCHLORIDE\RIBOFLAVIN 5^-PHOSPHATE SODIUM\THIAMINE HYDROCHLORIDE\VITAMIN B COMPLEX
     Indication: VITAMIN B12 DEFICIENCY
     Dosage: UNK UNK,QD
     Route: 048
     Dates: start: 20140311
  8. UNIZINK [Concomitant]
     Active Substance: AVOBENZONE\HOMOSALATE\OCTISALATE
     Indication: ZINC DEFICIENCY
     Dosage: UNK UNK,UNK
     Route: 048
     Dates: start: 20140310
  9. VITAMIN B COMPLEX [Concomitant]
     Active Substance: CYANOCOBALAMIN\DEXPANTHENOL\NIACINAMIDE\PYRIDOXINE HYDROCHLORIDE\RIBOFLAVIN 5^-PHOSPHATE SODIUM\THIAMINE HYDROCHLORIDE\VITAMIN B COMPLEX
     Indication: NUTRITIONAL SUPPLEMENTATION
  10. UNIZINK [Concomitant]
     Active Substance: AVOBENZONE\HOMOSALATE\OCTISALATE
     Indication: NUTRITIONAL SUPPLEMENTATION
  11. ALEMTUZUMAB [Suspect]
     Active Substance: ALEMTUZUMAB
     Dosage: 12 MG,UNK
     Route: 041
     Dates: start: 20170322, end: 20170324
  12. PREDNI [Suspect]
     Active Substance: PREDNISONE ACETATE
     Dosage: 100 MG, UNK
     Route: 042
     Dates: start: 20190416, end: 20190422

REACTIONS (7)
  - Immune thrombocytopenic purpura [Not Recovered/Not Resolved]
  - Herpes zoster [Recovered/Resolved]
  - Iron deficiency [Recovering/Resolving]
  - Eczema [Recovering/Resolving]
  - Fungal infection [Not Recovered/Not Resolved]
  - Nephrolithiasis [Unknown]
  - Gastritis [Not Recovered/Not Resolved]

NARRATIVE: CASE EVENT DATE: 20171001
